FAERS Safety Report 5376317-3 (Version None)
Quarter: 2007Q3

REPORT INFORMATION
  Report Type: 
  Country: None (occurrence: None)
  Receive Date: 20070702
  Receipt Date: 20070627
  Transmission Date: 20080115
  Serious: Yes (Other)
  Sender: FDA-Public Use
  Company Number: US-PURDUE-USA_2007_0027688

PATIENT
  Sex: Female
  Weight: 91 kg

DRUGS (1)
  1. OXYCONTIN [Suspect]
     Indication: PAIN
     Dosage: 40 MG, TID
     Dates: start: 19970101, end: 20010101

REACTIONS (35)
  - AMNESIA [None]
  - ANXIETY [None]
  - ARTHRALGIA [None]
  - CHEST PAIN [None]
  - CHILLS [None]
  - CONSTIPATION [None]
  - DEPRESSION [None]
  - DIZZINESS [None]
  - DRUG DEPENDENCE [None]
  - DRUG WITHDRAWAL SYNDROME [None]
  - DRY SKIN [None]
  - DYSPNOEA [None]
  - DYSURIA [None]
  - FAECES HARD [None]
  - FEELING ABNORMAL [None]
  - GENERAL PHYSICAL HEALTH DETERIORATION [None]
  - HALLUCINATION [None]
  - HEADACHE [None]
  - HEPATITIS C [None]
  - INSOMNIA [None]
  - INTESTINAL FUNCTIONAL DISORDER [None]
  - LOSS OF LIBIDO [None]
  - MUSCLE SPASMS [None]
  - NAUSEA [None]
  - NECK PAIN [None]
  - NIGHT SWEATS [None]
  - PAIN [None]
  - PRURITUS [None]
  - RASH GENERALISED [None]
  - SKIN EXFOLIATION [None]
  - SUICIDAL IDEATION [None]
  - THYROID DISORDER [None]
  - TOOTH LOSS [None]
  - TREMOR [None]
  - VOMITING [None]
